FAERS Safety Report 7650672-3 (Version None)
Quarter: 2011Q3

REPORT INFORMATION
  Report Type: 
  Country: None (occurrence: None)
  Receive Date: 20110802
  Receipt Date: 20110729
  Transmission Date: 20111222
  Serious: Yes (Death, Other)
  Sender: FDA-Public Use
  Company Number: PHHY2011GB60980

PATIENT
  Age: 37 Year
  Sex: Male

DRUGS (14)
  1. AMITRIPTYLINE HCL [Concomitant]
     Dosage: 75 MG, UNK
     Route: 048
     Dates: start: 20051001
  2. CLENIL [Concomitant]
     Dosage: 200 UG, BID
  3. CYCLIZINE [Concomitant]
     Dosage: 50 MG, TID
     Dates: start: 20090401
  4. ACETAMINOPHEN [Concomitant]
  5. ALBUTEROL [Concomitant]
     Dosage: 200 UG, UNK
  6. FLUOXETINE HYDROCHLORIDE [Concomitant]
     Dosage: 40 MG, QD
     Route: 048
     Dates: start: 20051001
  7. OMEPRAZOLE [Concomitant]
     Dosage: 40 MG, BID
     Route: 048
     Dates: start: 20080901
  8. NEFOPAM HYDROCHLORIDE [Concomitant]
     Dosage: 60 MG, TID
     Route: 048
     Dates: start: 20091001
  9. MEBEVERINE HYDROCHLORIDE [Concomitant]
     Dosage: 135 MG, TID
     Route: 048
     Dates: start: 20090401
  10. CELECOXIB [Concomitant]
     Route: 048
     Dates: start: 20051001
  11. FELODIPINE [Concomitant]
     Dosage: 10 MG, QD
     Route: 048
     Dates: start: 20060301
  12. FERROUS SULFATE TAB [Concomitant]
     Dosage: 200 MG, TID
     Route: 048
     Dates: start: 20090101
  13. SALMETEROL [Concomitant]
     Dosage: 50 UG, UNK
  14. TRAMADOL HCL [Suspect]
     Indication: BACK PAIN
     Dosage: UNK
     Route: 048
     Dates: start: 20090101

REACTIONS (3)
  - OVERDOSE [None]
  - CIRCULATORY COLLAPSE [None]
  - DEATH [None]
